FAERS Safety Report 12175908 (Version 3)
Quarter: 2016Q2

REPORT INFORMATION
  Report Type: Spontaneous
  Country: US (occurrence: US)
  Receive Date: 20160314
  Receipt Date: 20160517
  Transmission Date: 20160815
  Serious: No
  Sender: FDA-Public Use
  Company Number: US-PFIZER INC-2016130815

PATIENT
  Age: 55 Year
  Sex: Male
  Weight: 79.38 kg

DRUGS (1)
  1. NICOTROL [Suspect]
     Active Substance: NICOTINE
     Indication: SMOKING CESSATION THERAPY
     Dosage: 10 MG 2 TO 3 PER DAY (INCREASE WITH STRESS)
     Route: 048
     Dates: start: 2006

REACTIONS (4)
  - Incorrect dose administered [Not Recovered/Not Resolved]
  - Tooth fracture [Recovered/Resolved]
  - Stress [Unknown]
  - Intentional product misuse [Not Recovered/Not Resolved]
